FAERS Safety Report 16398520 (Version 1)
Quarter: 2019Q3

REPORT INFORMATION
  Report Type: Spontaneous
  Country: US (occurrence: US)
  Receive Date: 20190605
  Receipt Date: 20190605
  Transmission Date: 20191004
  Serious: Yes (Other)
  Sender: FDA-Public Use
  Company Number: None

PATIENT
  Age: 71 Year
  Sex: Male
  Weight: 60.98 kg

DRUGS (2)
  1. MULTIVITAMIN ADULTS [Concomitant]
  2. INLYTA [Suspect]
     Active Substance: AXITINIB
     Indication: RENAL CANCER
     Route: 048
     Dates: start: 20180918

REACTIONS (3)
  - Erythema [None]
  - Diarrhoea [None]
  - Burning sensation [None]
